FAERS Safety Report 4467739-3 (Version None)
Quarter: 2004Q4

REPORT INFORMATION
  Report Type: 
  Country: None (occurrence: None)
  Receive Date: 20041001
  Receipt Date: 20040921
  Transmission Date: 20050328
  Serious: Yes (Other)
  Sender: FDA-Public Use
  Company Number: 2004068924

PATIENT
  Age: 50 Year
  Sex: Male

DRUGS (1)
  1. SULPERAZON (CEFOPERAZONE, SULBACTAM) [Suspect]
     Indication: ILL-DEFINED DISORDER
     Dosage: 4 GRAM (2 GRAM, 2 IN 1 D)

REACTIONS (2)
  - HYPERBILIRUBINAEMIA [None]
  - JAUNDICE [None]
